FAERS Safety Report 24813678 (Version 1)
Quarter: 2025Q1

REPORT INFORMATION
  Report Type: Spontaneous
  Country: ES (occurrence: ES)
  Receive Date: 20250107
  Receipt Date: 20250107
  Transmission Date: 20250408
  Serious: Yes (Other)
  Sender: ZYDUS PHARM
  Company Number: ES-CADILA HEALTHCARE LIMITED-ES-ZYDUS-117306

PATIENT

DRUGS (1)
  1. VALACYCLOVIR HYDROCHLORIDE [Suspect]
     Active Substance: VALACYCLOVIR HYDROCHLORIDE
     Indication: Varicella zoster virus infection
     Route: 065

REACTIONS (3)
  - Abnormal behaviour [Recovered/Resolved]
  - Hallucination, visual [Recovered/Resolved]
  - Dysarthria [Recovered/Resolved]
